FAERS Safety Report 9052081 (Version 1)
Quarter: 2013Q1

REPORT INFORMATION
  Report Type: Spontaneous
  Country: US (occurrence: None)
  Receive Date: 20130131
  Receipt Date: 20130131
  Transmission Date: 20140127
  Serious: Yes (Hospitalization)
  Sender: FDA-Public Use
  Company Number: None

PATIENT
  Age: 70 Year
  Sex: Female
  Weight: 85.9 kg

DRUGS (9)
  1. GLIPIZIDE [Suspect]
     Indication: DIABETES MELLITUS
     Route: 048
  2. METFORMIN [Suspect]
     Route: 048
  3. AMLODIPINE [Concomitant]
  4. LOSARTAN [Concomitant]
  5. CHOLECALCIFEROL [Concomitant]
  6. CYANOCOBALAMIN [Concomitant]
  7. CLONIDINE [Concomitant]
  8. CARVEDILOL [Concomitant]
  9. LASIX [Concomitant]

REACTIONS (1)
  - Hypoglycaemia [None]
